FAERS Safety Report 11282937 (Version 1)
Quarter: 2015Q3

REPORT INFORMATION
  Report Type: Spontaneous
  Country: US (occurrence: None)
  Receive Date: 20150717
  Receipt Date: 20150717
  Transmission Date: 20151125
  Serious: No
  Sender: FDA-Public Use
  Company Number: None

PATIENT
  Age: 60 Year
  Sex: Female

DRUGS (2)
  1. RIBAVIRIN 200MG [Suspect]
     Active Substance: RIBAVIRIN
     Indication: ILL-DEFINED DISORDER
     Route: 048
     Dates: start: 20150703
  2. SOVALDI [Suspect]
     Active Substance: SOFOSBUVIR
     Indication: ILL-DEFINED DISORDER
     Route: 048
     Dates: start: 20150703

REACTIONS (2)
  - Ulcer [None]
  - Chest pain [None]

NARRATIVE: CASE EVENT DATE: 20150715
